FAERS Safety Report 17711845 (Version 1)
Quarter: 2020Q2

REPORT INFORMATION
  Report Type: Spontaneous
  Country: RU (occurrence: RU)
  Receive Date: 20200427
  Receipt Date: 20200427
  Transmission Date: 20200714
  Serious: Yes (Hospitalization)
  Sender: FDA-Public Use
  Company Number: RU-JNJFOC-20200430918

PATIENT
  Age: 86 Year
  Sex: Female
  Weight: 54.5 kg

DRUGS (7)
  1. LASIX [Concomitant]
     Active Substance: FUROSEMIDE
     Indication: PULMONARY HYPERTENSION
     Dosage: DAILY DOSE 40 MG
     Dates: start: 20170119, end: 201701
  2. DIGOXIN. [Concomitant]
     Active Substance: DIGOXIN
     Indication: PULMONARY HYPERTENSION
     Dosage: DAILY DOSE .25 MG
     Dates: start: 201701
  3. FUROSEMIDE. [Concomitant]
     Active Substance: FUROSEMIDE
     Dosage: DAILY DOSE 80 MG
     Dates: start: 201701
  4. FUROSEMIDE. [Concomitant]
     Active Substance: FUROSEMIDE
     Indication: PULMONARY HYPERTENSION
     Dosage: DAILY DOSE 80 MG
     Dates: start: 20160609, end: 20170118
  5. SILDENAFIL. [Concomitant]
     Active Substance: SILDENAFIL
     Indication: PULMONARY HYPERTENSION
     Dosage: DAILY DOSE 30 MG
     Dates: start: 20160620, end: 20170918
  6. RIVAROXABAN [Suspect]
     Active Substance: RIVAROXABAN
     Indication: PULMONARY HYPERTENSION
     Dosage: DAILY DOSE 15 MG
     Route: 048
     Dates: start: 2015, end: 20170918
  7. FURAGIN [AKRITOIN] [Concomitant]
     Indication: PULMONARY HYPERTENSION
     Dosage: DAILY DOSE 300 MG
     Dates: start: 201701, end: 20170110

REACTIONS (1)
  - Cardiac failure chronic [Recovered/Resolved]

NARRATIVE: CASE EVENT DATE: 20170119
